FAERS Safety Report 11921953 (Version 3)
Quarter: 2023Q4

REPORT INFORMATION
  Report Type: Spontaneous
  Country: IR (occurrence: IR)
  Receive Date: 20160115
  Receipt Date: 20231229
  Transmission Date: 20240110
  Serious: Yes (Hospitalization, Other)
  Sender: FDA-Public Use
  Company Number: IR-MLMSERVICE-20160107-0127296-1

PATIENT
  Age: 23 Year
  Sex: Male

DRUGS (1)
  1. DEXAMETHASONE [Suspect]
     Active Substance: DEXAMETHASONE
     Indication: Product used for unknown indication
     Route: 030

REACTIONS (7)
  - Cardiac ventricular thrombosis [Recovered/Resolved]
  - Acute myocardial infarction [Recovering/Resolving]
  - Hyperhomocysteinaemia [Recovered/Resolved]
  - Lipids abnormal [Recovered/Resolved]
  - Left ventricular dysfunction [Recovering/Resolving]
  - Drug abuse [Unknown]
  - Hypertension [Unknown]
